FAERS Safety Report 4399592-0 (Version None)
Quarter: 2004Q3

REPORT INFORMATION
  Report Type: 
  Country: None (occurrence: None)
  Receive Date: 20040716
  Receipt Date: 20040707
  Transmission Date: 20050211
  Serious: Yes (Death, Other)
  Sender: FDA-Public Use
  Company Number: JP-MERCK-0407USA00806

PATIENT
  Age: 27 Year
  Sex: Male

DRUGS (4)
  1. COSMEGEN [Suspect]
     Indication: NEUROBLASTOMA
     Route: 042
     Dates: start: 20000101, end: 20001001
  2. ADRIACIN [Suspect]
     Indication: NEUROBLASTOMA
     Route: 042
     Dates: start: 20000101, end: 20001001
  3. IFOMIDE [Suspect]
     Indication: NEUROBLASTOMA
     Route: 042
     Dates: start: 20000101, end: 20001001
  4. ONCOVIN [Suspect]
     Indication: NEUROBLASTOMA
     Route: 042
     Dates: start: 20000101, end: 20001001

REACTIONS (3)
  - BONE MARROW DEPRESSION [None]
  - BONE MARROW DISORDER [None]
  - NEUROBLASTOMA [None]
